FAERS Safety Report 7418659-3 (Version None)
Quarter: 2011Q2

REPORT INFORMATION
  Report Type: 
  Country: None (occurrence: None)
  Receive Date: 20110415
  Receipt Date: 20110413
  Transmission Date: 20111010
  Serious: Yes (Other)
  Sender: FDA-Public Use
  Company Number: FR-PFIZER INC-2011081060

PATIENT
  Age: 77 Year
  Sex: Female

DRUGS (1)
  1. TAHOR [Suspect]
     Indication: CEREBROVASCULAR ACCIDENT
     Dosage: 40 MG, 1X/DAY
     Dates: start: 20110213

REACTIONS (2)
  - MUSCLE FATIGUE [None]
  - TREMOR [None]
